FAERS Safety Report 7947066-X (Version None)
Quarter: 2011Q4

REPORT INFORMATION
  Report Type: 
  Country: None (occurrence: None)
  Receive Date: 20111129
  Receipt Date: 20110901
  Transmission Date: 20120403
  Serious: No
  Sender: FDA-Public Use
  Company Number: US-ASTRAZENECA-2011SE52712

PATIENT
  Age: 69 Year
  Sex: Male

DRUGS (1)
  1. VIMOVO [Suspect]
     Indication: OSTEOARTHRITIS
     Dosage: 500 MG/ 20 MG, TWICE A DAY
     Route: 048
     Dates: start: 20110201, end: 20110201

REACTIONS (2)
  - NIPPLE PAIN [None]
  - PRURITUS [None]
